FAERS Safety Report 15168765 (Version 1)
Quarter: 2018Q3

REPORT INFORMATION
  Report Type: Spontaneous
  Country: US (occurrence: US)
  Receive Date: 20180720
  Receipt Date: 20180720
  Transmission Date: 20181010
  Serious: Yes (Other)
  Sender: FDA-Public Use
  Company Number: US-UCBSA-2017052459

PATIENT
  Age: 62 Year
  Sex: Female
  Weight: 58.5 kg

DRUGS (2)
  1. SYNTHROID [Concomitant]
     Active Substance: LEVOTHYROXINE SODIUM
     Indication: PRODUCT USED FOR UNKNOWN INDICATION
     Dosage: 75 MCG, DAILY
     Dates: start: 1991
  2. KEPPRA [Suspect]
     Active Substance: LEVETIRACETAM
     Indication: PARTIAL SEIZURES
     Dosage: 500MG IN THE MORNING AND 750MG IN THE EVENING
     Route: 048
     Dates: start: 200502

REACTIONS (5)
  - Fatigue [Recovered/Resolved]
  - Off label use [Unknown]
  - Migraine with aura [Recovered/Resolved]
  - Speech disorder [Recovered/Resolved]
  - Product quality issue [Unknown]

NARRATIVE: CASE EVENT DATE: 2005
